FAERS Safety Report 6779365-1 (Version None)
Quarter: 2010Q2

REPORT INFORMATION
  Report Type: 
  Country: None (occurrence: None)
  Receive Date: 20100618
  Receipt Date: 20100609
  Transmission Date: 20101027
  Serious: Yes (Other)
  Sender: FDA-Public Use
  Company Number: PHHY2010US29243

PATIENT
  Sex: Female
  Weight: 97.506 kg

DRUGS (9)
  1. GLEEVEC [Suspect]
     Indication: CHRONIC MYELOID LEUKAEMIA
     Dosage: 400 MG, QD
     Route: 048
     Dates: start: 20100121, end: 20100427
  2. GLEEVEC [Suspect]
     Dosage: UNK
     Route: 048
     Dates: start: 20100504
  3. COUMADIN [Concomitant]
     Dosage: DAILY
     Route: 048
  4. PRANDIN [Concomitant]
     Dosage: DAILY
     Route: 048
  5. METOPROLOL TARTRATE [Concomitant]
  6. LISINOPRIL [Concomitant]
     Dosage: UNK
     Route: 048
  7. CRESTOR [Concomitant]
     Dosage: DAILY
     Route: 048
  8. ARIMIDEX [Concomitant]
     Route: 048
  9. LASIX [Concomitant]
     Dosage: DAILY
     Route: 048

REACTIONS (3)
  - FATIGUE [None]
  - OEDEMA PERIPHERAL [None]
  - VAGINAL HAEMORRHAGE [None]
